FAERS Safety Report 8403037-0 (Version None)
Quarter: 2012Q2

REPORT INFORMATION
  Report Type: 
  Country: None (occurrence: None)
  Receive Date: 20120601
  Receipt Date: 20120522
  Transmission Date: 20120825
  Serious: Yes (Hospitalization, Other)
  Sender: FDA-Public Use
  Company Number: US-ELI_LILLY_AND_COMPANY-US201107002107

PATIENT
  Sex: Male

DRUGS (19)
  1. FORTEO [Suspect]
     Indication: OSTEOPOROSIS
     Dosage: 20 UG, QD
     Route: 065
     Dates: start: 20110314
  2. PRAVASTATIN [Concomitant]
  3. ONE TABLET DAILY MENS FORMULA [Concomitant]
  4. FORTEO [Suspect]
     Dosage: 20 UG, QD
     Route: 065
  5. PLAVIX [Concomitant]
  6. COQ10 [Concomitant]
  7. FORTEO [Suspect]
     Dosage: 20 UG, QD
     Route: 065
  8. METFORMIN HCL [Concomitant]
  9. COMBIVENT [Concomitant]
  10. ASPIRIN [Concomitant]
  11. SAW PALMETTO [Concomitant]
  12. LISINOPRIL [Concomitant]
  13. GABAPENTIN [Concomitant]
  14. NIACIN [Concomitant]
  15. COREG [Concomitant]
  16. FISH OIL [Concomitant]
  17. ZETIA [Concomitant]
  18. GARLIC [Concomitant]
  19. OSTEO BI-FLEX [Concomitant]

REACTIONS (7)
  - INJECTION SITE HAEMATOMA [None]
  - AORTIC VALVE CALCIFICATION [None]
  - BRONCHIECTASIS [None]
  - ANAEMIA [None]
  - MUSCULAR WEAKNESS [None]
  - CHEST DISCOMFORT [None]
  - EXERCISE TOLERANCE DECREASED [None]
